FAERS Safety Report 5804243-1 (Version None)
Quarter: 2008Q3

REPORT INFORMATION
  Report Type: 
  Country: None (occurrence: None)
  Receive Date: 20080707
  Receipt Date: 20080619
  Transmission Date: 20090109
  Serious: Yes (Other)
  Sender: FDA-Public Use
  Company Number: 2008EU001276

PATIENT
  Age: 4 Year
  Sex: Female

DRUGS (4)
  1. PROGRAF [Suspect]
     Indication: NEPHROPATHY
  2. ACETYLSALICYLIC ACID SRT [Concomitant]
  3. PREDNISONE TAB [Concomitant]
  4. AMLODIPINE [Concomitant]

REACTIONS (20)
  - ABDOMINAL PAIN [None]
  - BLEEDING TIME PROLONGED [None]
  - BLOOD POTASSIUM DECREASED [None]
  - BLOOD PRESSURE INCREASED [None]
  - BLOOD URIC ACID INCREASED [None]
  - DECREASED APPETITE [None]
  - DIARRHOEA [None]
  - DRUG INTERACTION [None]
  - ECCHYMOSIS [None]
  - EPISTAXIS [None]
  - GINGIVAL BLEEDING [None]
  - HAEMOGLOBIN DECREASED [None]
  - HAEMORRHAGE [None]
  - HEADACHE [None]
  - INCREASED TENDENCY TO BRUISE [None]
  - OVERDOSE [None]
  - PAIN IN EXTREMITY [None]
  - PROTHROMBIN TIME PROLONGED [None]
  - TACHYPNOEA [None]
  - VOMITING [None]
